FAERS Safety Report 8352150-5 (Version None)
Quarter: 2012Q2

REPORT INFORMATION
  Report Type: 
  Country: None (occurrence: None)
  Receive Date: 20120510
  Receipt Date: 20120510
  Transmission Date: 20120825
  Serious: Yes (Life-Threatening)
  Sender: FDA-Public Use
  Company Number: None

PATIENT
  Age: 82 Year
  Sex: Female
  Weight: 47.3 kg

DRUGS (1)
  1. PRADAXA [Suspect]
     Indication: CEREBROVASCULAR ACCIDENT PROPHYLAXIS
     Dosage: 75MG BID PO
     Route: 048

REACTIONS (5)
  - SUBDURAL HAEMATOMA [None]
  - FALL [None]
  - UNRESPONSIVE TO STIMULI [None]
  - MYDRIASIS [None]
  - PUPIL FIXED [None]
